FAERS Safety Report 8742834 (Version 3)
Quarter: 2012Q4

REPORT INFORMATION
  Report Type: 
  Country: JP (occurrence: JP)
  Receive Date: 20120824
  Receipt Date: 20121217
  Transmission Date: 20130627
  Serious: Yes (Other)
  Sender: FDA-Public Use
  Company Number: JP-009507513-1208JPN004873

PATIENT
  Age: 73 Year
  Sex: Female
  Weight: 49 kg

DRUGS (15)
  1. PEGINTRON [Suspect]
     Indication: CHRONIC HEPATITIS C
     Dosage: 1.5 Microgram per kilogram, UNK
     Route: 058
     Dates: start: 20120602, end: 20121108
  2. REBETOL [Suspect]
     Indication: CHRONIC HEPATITIS C
     Dosage: 400 mg, qd
     Route: 048
     Dates: start: 20120602, end: 20120614
  3. REBETOL [Suspect]
     Dosage: 200 mg, qd
     Route: 048
     Dates: start: 20120615, end: 20121108
  4. TELAVIC [Suspect]
     Indication: CHRONIC HEPATITIS C
     Dosage: 1000 mg qd
     Route: 048
     Dates: start: 20120602, end: 20120725
  5. TELAVIC [Suspect]
     Dosage: 500 mg, qd
     Route: 048
     Dates: start: 20120726, end: 20120823
  6. LIVALO [Concomitant]
     Indication: HYPERLIPIDAEMIA
     Dosage: 2mg,qd,Formulation: por
     Route: 048
  7. EPADEL S [Concomitant]
     Indication: HYPERLIPIDAEMIA
     Dosage: 1800 mg, qd,Formulation: Por
     Route: 048
  8. FEROTYM [Concomitant]
     Indication: IRON DEFICIENCY ANAEMIA
     Dosage: 100 mg, qd,Formulation: por
     Route: 048
  9. CLARITIN REDITABS [Concomitant]
     Indication: PROPHYLAXIS
     Dosage: 10 mg, qd,Formulation: por
     Route: 048
  10. OMEPRAZOLE [Concomitant]
     Indication: GASTROOESOPHAGEAL REFLUX DISEASE
     Dosage: 20 mg, qd,Formulation: por
     Route: 048
  11. MICARDIS [Concomitant]
     Indication: HYPERTENSION
     Dosage: 20 mg, qd,Formulation: por
     Route: 048
  12. CORINAEL CR [Concomitant]
     Indication: HYPERTENSION
     Dosage: 20 mg, qd,Formulation: por
     Route: 048
  13. ONEALFA [Concomitant]
     Indication: OSTEOPOROSIS
     Dosage: 1 Microgram, qd,Formulation: por
     Route: 048
  14. SALOBEL [Concomitant]
     Indication: HYPERURICAEMIA
     Dosage: 200 mg, qd,Formulation: por
     Route: 048
  15. BENECID [Concomitant]
     Indication: HYPERURICAEMIA
     Dosage: 500 mg, qd,Formulation: por
     Route: 048

REACTIONS (4)
  - Anaemia [Not Recovered/Not Resolved]
  - Anaemia [Not Recovered/Not Resolved]
  - Platelet count decreased [Not Recovered/Not Resolved]
  - Anaemia [Not Recovered/Not Resolved]
